FAERS Safety Report 18862283 (Version 1)
Quarter: 2021Q1

REPORT INFORMATION
  Report Type: Spontaneous
  Country: US (occurrence: US)
  Receive Date: 20210209
  Receipt Date: 20210209
  Transmission Date: 20210420
  Serious: No
  Sender: FDA-Public Use
  Company Number: US-PURDUE PHARMA-USA-2021-0200386

PATIENT
  Age: 51 Year
  Sex: Male

DRUGS (2)
  1. BUTRANS [Suspect]
     Active Substance: BUPRENORPHINE
     Dosage: 10 MCG/HR, WEEKLY
     Route: 062
  2. BUTRANS [Suspect]
     Active Substance: BUPRENORPHINE
     Indication: PAIN
     Dosage: 10 MCG/HR, WEEKLY
     Route: 062
     Dates: start: 202009

REACTIONS (8)
  - Wrong technique in product usage process [Unknown]
  - Energy increased [Unknown]
  - Euphoric mood [Unknown]
  - Insomnia [Unknown]
  - Application site pain [Unknown]
  - Dermatitis contact [Unknown]
  - Product physical issue [Unknown]
  - Therapeutic product effect prolonged [Unknown]

NARRATIVE: CASE EVENT DATE: 20210123
